FAERS Safety Report 7801490-4 (Version None)
Quarter: 2011Q4

REPORT INFORMATION
  Report Type: 
  Country: None (occurrence: None)
  Receive Date: 20111007
  Receipt Date: 20110927
  Transmission Date: 20120403
  Serious: Yes (Other)
  Sender: FDA-Public Use
  Company Number: DK-JNJFOC-20110911853

PATIENT
  Sex: Female

DRUGS (4)
  1. REMICADE [Suspect]
     Indication: RHEUMATOID ARTHRITIS
     Dosage: AT 0,2,6 AND 8 WEEKS
     Route: 042
     Dates: start: 20070116
  2. REMICADE [Suspect]
     Route: 042
     Dates: start: 20110913
  3. METHOTREXATE [Concomitant]
     Route: 048
     Dates: start: 20000426
  4. REMICADE [Suspect]
     Route: 042

REACTIONS (2)
  - COLON CANCER [None]
  - METASTASES TO LUNG [None]
